FAERS Safety Report 6785871-6 (Version None)
Quarter: 2010Q2

REPORT INFORMATION
  Report Type: 
  Country: None (occurrence: None)
  Receive Date: 20100621
  Receipt Date: 20100621
  Transmission Date: 20101027
  Serious: No
  Sender: FDA-Public Use
  Company Number: None

PATIENT
  Age: 44 Year
  Sex: Female
  Weight: 58.9676 kg

DRUGS (2)
  1. FLUOXETINE [Suspect]
     Indication: FIBROMYALGIA
     Dosage: 10 MG DAILY 047
     Dates: start: 20100523, end: 20100530
  2. FLUOXETINE [Suspect]
     Indication: POST-TRAUMATIC STRESS DISORDER
     Dosage: 10 MG DAILY 047
     Dates: start: 20100523, end: 20100530

REACTIONS (5)
  - DIZZINESS [None]
  - FATIGUE [None]
  - HEADACHE [None]
  - NAUSEA [None]
  - PRODUCT SUBSTITUTION ISSUE [None]
